FAERS Safety Report 9040637 (Version 1)
Quarter: 2013Q1

REPORT INFORMATION
  Report Type: Report from Study
  Country: US (occurrence: US)
  Receive Date: 20130129
  Receipt Date: 20130129
  Transmission Date: 20140127
  Serious: No
  Sender: FDA-Public Use
  Company Number: US-ABBOTT-11P-163-0885430-00

PATIENT
  Age: 52 Year
  Sex: Male

DRUGS (7)
  1. HUMIRA 40 MG/0.8 ML PEN [Suspect]
     Indication: CROHN^S DISEASE
     Dosage: LOADING DOSE
     Route: 058
     Dates: start: 20111215, end: 20111215
  2. HUMIRA 40 MG/0.8 ML PEN [Suspect]
     Route: 058
     Dates: start: 20111229, end: 20111229
  3. HUMIRA 40 MG/0.8 ML PEN [Suspect]
     Route: 058
  4. PREDNISONE [Concomitant]
     Indication: CROHN^S DISEASE
  5. IMURAN [Concomitant]
     Indication: CROHN^S DISEASE
  6. IVIG [Concomitant]
     Indication: CROHN^S DISEASE
  7. VITAMIN D [Concomitant]
     Indication: CROHN^S DISEASE

REACTIONS (6)
  - Injection site pain [Recovered/Resolved]
  - Injection site pain [Recovered/Resolved]
  - Injection site haemorrhage [Recovered/Resolved]
  - Injection site pain [Recovering/Resolving]
  - Cough [Unknown]
  - Productive cough [Recovering/Resolving]
